FAERS Safety Report 7638456-3 (Version None)
Quarter: 2011Q3

REPORT INFORMATION
  Report Type: 
  Country: None (occurrence: None)
  Receive Date: 20110727
  Receipt Date: 20110725
  Transmission Date: 20111222
  Serious: Yes (Hospitalization)
  Sender: FDA-Public Use
  Company Number: US-B.I. PHARMACEUTICALS,INC./RIDGEFIELD-2011-BP-12721BP

PATIENT
  Age: 73 Year
  Sex: Female

DRUGS (6)
  1. COUMADIN [Suspect]
     Indication: ATRIAL FIBRILLATION
     Dates: start: 20110302, end: 20110305
  2. DIGOXIN [Concomitant]
     Indication: ATRIAL FIBRILLATION
  3. LEVOTHYROXINE SODIUM [Concomitant]
     Indication: HYPOTHYROIDISM
  4. AMIODARONE HCL [Concomitant]
     Indication: ATRIAL FIBRILLATION
  5. PRADAXA [Suspect]
     Dosage: 300 MG
     Route: 048
     Dates: start: 20110310
  6. PRADAXA [Suspect]
     Indication: ATRIAL FIBRILLATION
     Dosage: 300 MG
     Route: 048
     Dates: start: 20110227, end: 20110305

REACTIONS (5)
  - HEART RATE DECREASED [None]
  - HYPERHIDROSIS [None]
  - TOXICITY TO VARIOUS AGENTS [None]
  - FATIGUE [None]
  - HOT FLUSH [None]
